FAERS Safety Report 5799042-3 (Version None)
Quarter: 2008Q3

REPORT INFORMATION
  Report Type: 
  Country: None (occurrence: None)
  Receive Date: 20080701
  Receipt Date: 20080623
  Transmission Date: 20090109
  Serious: Yes (Other)
  Sender: FDA-Public Use
  Company Number: 2007SP011720

PATIENT
  Age: 53 Year
  Sex: Female
  Weight: 61.6892 kg

DRUGS (3)
  1. PEG-INTRON [Suspect]
     Indication: HEPATITIS C
     Dosage: SC
     Route: 058
     Dates: start: 20070528, end: 20071224
  2. RIBASPHERE [Suspect]
     Indication: HEPATITIS C
     Dosage: PO
     Route: 048
     Dates: start: 20070528, end: 20071224
  3. NEURONTIN [Suspect]
     Indication: CHONDROPATHY

REACTIONS (32)
  - ARTHRALGIA [None]
  - BACK PAIN [None]
  - BEDRIDDEN [None]
  - BRONCHITIS [None]
  - CHONDROPATHY [None]
  - CONDITION AGGRAVATED [None]
  - CONSTIPATION [None]
  - DEHYDRATION [None]
  - DIARRHOEA [None]
  - DRY SKIN [None]
  - DYSARTHRIA [None]
  - DYSPHAGIA [None]
  - FATIGUE [None]
  - FEELING ABNORMAL [None]
  - FLUID INTAKE REDUCED [None]
  - HEART RATE IRREGULAR [None]
  - INJECTION SITE RASH [None]
  - LIP ULCERATION [None]
  - MALAISE [None]
  - MITRAL VALVE PROLAPSE [None]
  - NAUSEA [None]
  - NECK PAIN [None]
  - ORAL CANDIDIASIS [None]
  - OROPHARYNGEAL PAIN [None]
  - PRECANCEROUS SKIN LESION [None]
  - PRURITUS [None]
  - RECTAL HAEMORRHAGE [None]
  - SCAB [None]
  - SECRETION DISCHARGE [None]
  - VIRAL LOAD INCREASED [None]
  - VOMITING [None]
  - WEIGHT DECREASED [None]
